FAERS Safety Report 11078568 (Version 1)
Quarter: 2015Q2

REPORT INFORMATION
  Report Type: Report from Study
  Country: CA (occurrence: None)
  Receive Date: 20150428
  Receipt Date: 20150428
  Transmission Date: 20150821
  Serious: Yes (Other)
  Sender: FDA-Public Use
  Company Number: 2833990H

PATIENT
  Age: 52 Year
  Sex: Female
  Weight: 58 kg

DRUGS (1)
  1. PAMIDRONIC ACID [Suspect]
     Active Substance: PAMIDRONIC ACID
     Indication: PRODUCT USED FOR UNKNOWN INDICATION
     Dosage: 20 MG MILLIGRAM (S), 1 MONTH, INTRAMUSCULAR
     Route: 030

REACTIONS (48)
  - Chills [None]
  - Sepsis [None]
  - Weight decreased [None]
  - Muscle spasms [None]
  - Upper limb fracture [None]
  - Body temperature decreased [None]
  - Dysgeusia [None]
  - Weight increased [None]
  - Abdominal pain [None]
  - White blood cell count increased [None]
  - Blood glucose increased [None]
  - Escherichia infection [None]
  - Generalised oedema [None]
  - Pulmonary embolism [None]
  - Urine odour abnormal [None]
  - Dyspnoea [None]
  - Haemoglobin decreased [None]
  - Chest discomfort [None]
  - Fluid retention [None]
  - Hepatitis [None]
  - Decreased appetite [None]
  - Diarrhoea [None]
  - Infusion site erythema [None]
  - Pallor [None]
  - Pulmonary oedema [None]
  - Heart rate increased [None]
  - Nasopharyngitis [None]
  - Tachycardia [None]
  - Urinary tract infection [None]
  - Fatigue [None]
  - Infusion site phlebitis [None]
  - Malignant neoplasm progression [None]
  - Vomiting [None]
  - Anxiety [None]
  - Hypotension [None]
  - Malaise [None]
  - Oxygen saturation decreased [None]
  - Oedema peripheral [None]
  - Supraventricular tachycardia [None]
  - Blood pressure diastolic decreased [None]
  - Infusion site swelling [None]
  - Pain in extremity [None]
  - Influenza [None]
  - Viral infection [None]
  - Abdominal pain lower [None]
  - Metastases to bone [None]
  - Pain [None]
  - Pyrexia [None]
